FAERS Safety Report 9638940 (Version 1)
Quarter: 2013Q4

REPORT INFORMATION
  Report Type: Spontaneous
  Country: US (occurrence: US)
  Receive Date: 20131022
  Receipt Date: 20131022
  Transmission Date: 20140711
  Serious: No
  Sender: FDA-Public Use
  Company Number: US-TARO-2013P1003459

PATIENT
  Sex: Female

DRUGS (2)
  1. CLOTRIMAZOLE TOPICAL CREAM USP 1% [Suspect]
     Route: 061
     Dates: start: 20130314, end: 20130314
  2. CLOTRIMAZOLE TOPICAL CREAM USP 1% [Suspect]
     Route: 067
     Dates: start: 20130314, end: 20130314

REACTIONS (2)
  - Vulvovaginal burning sensation [Recovered/Resolved]
  - Accidental exposure to product [Recovered/Resolved]
